FAERS Safety Report 11447417 (Version 2)
Quarter: 2015Q4

REPORT INFORMATION
  Report Type: Spontaneous
  Country: US (occurrence: US)
  Receive Date: 20150902
  Receipt Date: 20151001
  Transmission Date: 20160304
  Serious: No
  Sender: FDA-Public Use
  Company Number: US-JNJFOC-20150808402

PATIENT

DRUGS (4)
  1. IXAZOMIB [Interacting]
     Active Substance: IXAZOMIB
     Indication: LYMPHOMA
     Dosage: ON DAY 1 AND 15
     Route: 048
  2. IXAZOMIB [Interacting]
     Active Substance: IXAZOMIB
     Indication: NEOPLASM
     Dosage: ON DAY 1 AND 15
     Route: 048
  3. KETOCONAZOLE. [Suspect]
     Active Substance: KETOCONAZOLE
     Indication: LYMPHOMA
     Dosage: ON DAY 12-25
     Route: 048
  4. KETOCONAZOLE. [Suspect]
     Active Substance: KETOCONAZOLE
     Indication: NEOPLASM
     Dosage: ON DAY 12-25
     Route: 048

REACTIONS (2)
  - Product use issue [Unknown]
  - Drug interaction [Unknown]
